FAERS Safety Report 12834486 (Version 20)
Quarter: 2020Q1

REPORT INFORMATION
  Report Type: Spontaneous
  Country: US (occurrence: US)
  Receive Date: 20161010
  Receipt Date: 20200325
  Transmission Date: 20200409
  Serious: Yes (Life-Threatening, Hospitalization, Other)
  Sender: FDA-Public Use
  Company Number: US-PFIZER INC-2016465330

PATIENT
  Age: 63 Year
  Sex: Female
  Weight: 95.25 kg

DRUGS (45)
  1. CYMBALTA [Suspect]
     Active Substance: DULOXETINE HYDROCHLORIDE
     Dosage: UNK
     Dates: end: 2015
  2. IBUPROFEN. [Concomitant]
     Active Substance: IBUPROFEN
     Indication: INFLAMMATION
  3. METFORMIN [Concomitant]
     Active Substance: METFORMIN HYDROCHLORIDE
     Indication: DIABETES MELLITUS
     Dosage: 500 MG, 2X/DAY
     Dates: start: 20200201
  4. LYRICA [Suspect]
     Active Substance: PREGABALIN
     Indication: NEUROPATHY PERIPHERAL
     Dosage: 150 MG, 1X/DAY
     Dates: start: 20170613, end: 20170615
  5. LYRICA [Suspect]
     Active Substance: PREGABALIN
     Dosage: 300 MG, 2X/DAY
     Route: 048
  6. IBUPROFEN. [Suspect]
     Active Substance: IBUPROFEN
     Indication: DIABETIC NEUROPATHY
     Dosage: 800 MG, 3X/DAY
  7. ALLERGY [Concomitant]
     Active Substance: UNSPECIFIED INGREDIENT
     Indication: SINUSITIS
     Dosage: 25 MG, 3X/DAY
  8. LANTUS [Concomitant]
     Active Substance: INSULIN GLARGINE
     Dosage: 30 IU, 1X/DAY ((IN EVENING))
     Dates: start: 2016
  9. LANTUS [Concomitant]
     Active Substance: INSULIN GLARGINE
     Dosage: 40 IU, 1X/DAY (40UNITS AT NIGHT)
  10. LYRICA [Suspect]
     Active Substance: PREGABALIN
     Dosage: 10 MG, 4X/DAY
  11. LYRICA [Suspect]
     Active Substance: PREGABALIN
     Dosage: UNK
  12. LORTAB [Concomitant]
     Active Substance: ACETAMINOPHEN\HYDROCODONE BITARTRATE
     Dosage: UNK
  13. NORCO [Concomitant]
     Active Substance: ACETAMINOPHEN\HYDROCODONE BITARTRATE
     Indication: PAIN
     Dosage: 10-325
  14. LYRICA [Suspect]
     Active Substance: PREGABALIN
     Indication: NEURALGIA
     Dosage: 150 MG, 3X/DAY
     Route: 048
     Dates: start: 201606, end: 2016
  15. LYRICA [Suspect]
     Active Substance: PREGABALIN
     Indication: FIBROMYALGIA
     Dosage: 150 MG, UNK
  16. LYRICA [Suspect]
     Active Substance: PREGABALIN
     Dosage: 5 MG, UNK
  17. LYRICA [Suspect]
     Active Substance: PREGABALIN
     Dosage: 300 MG, 2X/DAY
     Route: 048
     Dates: start: 2018
  18. IBUPROFEN. [Concomitant]
     Active Substance: IBUPROFEN
     Indication: DIABETIC NEUROPATHY
     Dosage: 800 MG, 3X/DAY
     Dates: start: 2005, end: 2008
  19. IBUPROFEN. [Concomitant]
     Active Substance: IBUPROFEN
     Indication: ARTHRALGIA
     Dosage: 800 MG, 3X/DAY
  20. FUROSEMIDE. [Concomitant]
     Active Substance: FUROSEMIDE
     Indication: SWELLING
  21. FENTANYL. [Concomitant]
     Active Substance: FENTANYL
     Dosage: UNK
     Route: 062
  22. AMLODIPINE BESILATE [Concomitant]
     Active Substance: AMLODIPINE BESYLATE
     Dosage: 5 MG, DAILY
  23. LYRICA [Suspect]
     Active Substance: PREGABALIN
     Dosage: 3 DF, DAILY
  24. LYRICA [Suspect]
     Active Substance: PREGABALIN
     Dosage: 75 MG, UNK
  25. HYDROCODONE [Suspect]
     Active Substance: HYDROCODONE
     Indication: NEUROPATHY PERIPHERAL
     Dosage: 10 MG, UNK
  26. HYDROCODONE [Suspect]
     Active Substance: HYDROCODONE
     Indication: FIBROMYALGIA
     Dosage: 7.5 MG, UNK
  27. HYDROCODONE/ACETAMINOPHEN [Suspect]
     Active Substance: ACETAMINOPHEN\HYDROCODONE
     Indication: PAIN
     Dosage: 1 DF, 4X/DAY (10 MG/325 MG, EVERY 6 HRS)
  28. HYDROCODONE/ACETAMINOPHEN [Suspect]
     Active Substance: ACETAMINOPHEN\HYDROCODONE
     Dosage: 1 DF, 3X/DAY (7.5 MG/325 MG, THREE TIMES DAILY)
     Route: 048
  29. TOUJEO [Concomitant]
     Active Substance: INSULIN GLARGINE
     Dosage: 30 IU, 1X/DAY AT NIGHT
  30. HYDROCODONE/ACETAMINOPHEN [Concomitant]
     Active Substance: ACETAMINOPHEN\HYDROCODONE
     Dosage: 7.5 MG, UNK
     Route: 048
  31. LYRICA [Suspect]
     Active Substance: PREGABALIN
     Dosage: 150 MG, UNK
  32. TOUJEO [Concomitant]
     Active Substance: INSULIN GLARGINE
     Dosage: 30 IU, 1X/DAY IN EVENING
  33. FUROSEMIDE. [Concomitant]
     Active Substance: FUROSEMIDE
     Indication: PLEURAL EFFUSION
     Dosage: 40MG, TAKES 2 DAILY
     Dates: start: 2016
  34. FEXOFENADINE [Concomitant]
     Active Substance: FEXOFENADINE HYDROCHLORIDE
     Indication: NASAL CONGESTION
     Dosage: 180 MG, DAILY
     Dates: start: 2019
  35. LYRICA [Suspect]
     Active Substance: PREGABALIN
     Indication: TOXIC NEUROPATHY
     Dosage: 150 MG, 3X/DAY
     Dates: start: 2008
  36. HYDROCODONE/ACETAMINOPHEN [Concomitant]
     Active Substance: ACETAMINOPHEN\HYDROCODONE
     Indication: PAIN
     Dosage: 10 MG, 4X/DAY
     Route: 048
     Dates: start: 2016
  37. ASPIRIN. [Concomitant]
     Active Substance: ASPIRIN
     Indication: CEREBROVASCULAR ACCIDENT
  38. ATORVASTATIN [Concomitant]
     Active Substance: ATORVASTATIN
     Indication: BLOOD CHOLESTEROL ABNORMAL
     Dosage: 20 MG, 1X/DAY (ONE TABLET, IN THE EVENING)
     Dates: start: 2016
  39. LANTUS [Concomitant]
     Active Substance: INSULIN GLARGINE
     Indication: DIABETES MELLITUS
     Dosage: UNK (30 UNITS ON PEN)
  40. CYMBALTA [Concomitant]
     Active Substance: DULOXETINE HYDROCHLORIDE
     Dosage: UNK
  41. LYRICA [Suspect]
     Active Substance: PREGABALIN
     Indication: DIABETIC NEUROPATHY
     Dosage: 150 MG, 3X/DAY
     Route: 048
     Dates: end: 20170612
  42. FENTANYL. [Suspect]
     Active Substance: FENTANYL
     Dosage: EVERY THREE DAYS
     Dates: end: 2015
  43. FUROSEMIDE. [Concomitant]
     Active Substance: FUROSEMIDE
     Indication: PERICARDIAL EFFUSION
     Dosage: 40 MG, 1X/DAY
     Dates: start: 2016
  44. ASPIRIN. [Concomitant]
     Active Substance: ASPIRIN
     Indication: MYOCARDIAL INFARCTION
     Dosage: 81 MG, 1X/DAY
     Dates: start: 2010
  45. NORCO [Concomitant]
     Active Substance: ACETAMINOPHEN\HYDROCODONE BITARTRATE
     Dosage: 7.5/3.25UNK
     Route: 048

REACTIONS (35)
  - Metastases to central nervous system [Unknown]
  - Cough [Unknown]
  - Weight increased [Unknown]
  - Confusional state [Unknown]
  - Restlessness [Unknown]
  - Nausea [Not Recovered/Not Resolved]
  - Crying [Unknown]
  - Body height decreased [Unknown]
  - Neoplasm recurrence [Unknown]
  - Insomnia [Not Recovered/Not Resolved]
  - Emotional distress [Unknown]
  - Feeling abnormal [Unknown]
  - Eating disorder [Unknown]
  - Drug ineffective [Unknown]
  - Paraesthesia [Unknown]
  - Anxiety [Unknown]
  - Malaise [Unknown]
  - Neuropathy peripheral [Not Recovered/Not Resolved]
  - Pain in extremity [Unknown]
  - Burning sensation [Unknown]
  - Retching [Not Recovered/Not Resolved]
  - Decreased appetite [Unknown]
  - Vomiting [Unknown]
  - Abnormal behaviour [Unknown]
  - Myocardial infarction [Recovered/Resolved]
  - Drug dependence [Unknown]
  - Intentional product misuse [Unknown]
  - Gait disturbance [Unknown]
  - Dry skin [Unknown]
  - Withdrawal syndrome [Unknown]
  - Hot flush [Unknown]
  - Pain [Not Recovered/Not Resolved]
  - Discomfort [Not Recovered/Not Resolved]
  - Affect lability [Unknown]
  - Anger [Unknown]

NARRATIVE: CASE EVENT DATE: 2013
